FAERS Safety Report 5285744-4 (Version None)
Quarter: 2007Q1

REPORT INFORMATION
  Report Type: 
  Country: None (occurrence: None)
  Receive Date: 20070126
  Receipt Date: 20050902
  Transmission Date: 20070707
  Serious: No
  Sender: FDA-Public Use
  Company Number: 2006CT001177

PATIENT
  Age: 66 Year
  Sex: Female
  Weight: 95 kg

DRUGS (18)
  1. VENTAVIS [Suspect]
     Indication: PULMONARY HYPERTENSION
     Dosage: SEE IMAGE
     Route: 055
     Dates: start: 20050815, end: 20050801
  2. VENTAVIS [Suspect]
     Indication: PULMONARY HYPERTENSION
     Dosage: SEE IMAGE
     Route: 055
     Dates: start: 20050801, end: 20050822
  3. ADVAIR DISKUS 100/50 [Concomitant]
  4. ALDACTONE [Concomitant]
  5. AMARYL [Concomitant]
  6. MAGNESIUM/ZINC/CALCIUM [Concomitant]
  7. CARDIZEM [Concomitant]
  8. CENTRUM SILVER [Concomitant]
  9. WARFARIN SODIUM [Concomitant]
  10. FOLIC ACID [Concomitant]
  11. GLUCOPHAGE [Concomitant]
  12. KLOR-CON [Concomitant]
  13. LASIX [Concomitant]
  14. OXYGEN [Concomitant]
  15. TIOTROPIUM BROMIDE [Concomitant]
  16. TRACLEER [Concomitant]
  17. ASCORBIC ACID [Concomitant]
  18. ZETIA [Concomitant]

REACTIONS (2)
  - FATIGUE [None]
  - OXYGEN SATURATION DECREASED [None]
